FAERS Safety Report 6106071-9 (Version None)
Quarter: 2009Q1

REPORT INFORMATION
  Report Type: 
  Country: None (occurrence: None)
  Receive Date: 20090306
  Receipt Date: 20090223
  Transmission Date: 20090719
  Serious: Yes (Other)
  Sender: FDA-Public Use
  Company Number: US-PFIZER INC-2009175082

PATIENT
  Sex: Female
  Weight: 81.646 kg

DRUGS (1)
  1. XALATAN [Suspect]
     Indication: GLAUCOMA
     Dosage: UNK

REACTIONS (3)
  - DURAL FISTULA [None]
  - INTRAOCULAR PRESSURE INCREASED [None]
  - PUPILLARY DISORDER [None]
